FAERS Safety Report 9357419 (Version 1)
Quarter: 2013Q2

REPORT INFORMATION
  Report Type: Spontaneous
  Country: CH (occurrence: CH)
  Receive Date: 20130620
  Receipt Date: 20130620
  Transmission Date: 20140414
  Serious: Yes (Hospitalization)
  Sender: FDA-Public Use
  Company Number: CH-JNJFOC-20130608257

PATIENT
  Age: 63 Year
  Sex: Female
  Weight: 55 kg

DRUGS (9)
  1. XARELTO [Suspect]
     Indication: PROPHYLAXIS
     Route: 048
     Dates: start: 20130303, end: 20130403
  2. DICLOFENAC [Suspect]
     Indication: LUMBAR VERTEBRAL FRACTURE
     Route: 048
     Dates: start: 20130303, end: 20130405
  3. DICLOFENAC [Suspect]
     Indication: PELVIC FRACTURE
     Route: 048
     Dates: start: 20130303, end: 20130405
  4. NOVALGIN [Suspect]
     Indication: PELVIC FRACTURE
     Route: 048
     Dates: start: 20130303, end: 20130405
  5. NOVALGIN [Suspect]
     Indication: LUMBAR VERTEBRAL FRACTURE
     Route: 048
     Dates: start: 20130303, end: 20130405
  6. LOSARTAN [Concomitant]
     Route: 048
  7. EUTHYROX [Concomitant]
     Dosage: 75 ?G
     Route: 065
  8. PANTOZOL [Concomitant]
     Route: 048
  9. BISOPROLOL [Concomitant]
     Route: 048

REACTIONS (7)
  - Haemorrhagic anaemia [Recovering/Resolving]
  - Gastritis haemorrhagic [Recovered/Resolved]
  - Melaena [Recovered/Resolved]
  - Renal failure chronic [Recovering/Resolving]
  - Proteinuria [Recovering/Resolving]
  - Cardiac failure [Recovered/Resolved]
  - Pleural effusion [Recovering/Resolving]
